FAERS Safety Report 14661723 (Version 2)
Quarter: 2018Q2

REPORT INFORMATION
  Report Type: Report from Study
  Country: US (occurrence: US)
  Receive Date: 20180320
  Receipt Date: 20180404
  Transmission Date: 20180711
  Serious: Yes (Death, Hospitalization, Other)
  Sender: FDA-Public Use
  Company Number: US-GILEAD-2018-0327754

PATIENT
  Age: 80 Year
  Sex: Female
  Weight: 55.9 kg

DRUGS (22)
  1. AZTREONAM LYSINE [Suspect]
     Active Substance: AZTREONAM LYSINE
     Indication: BRONCHIECTASIS
  2. PEPCID                             /00305201/ [Concomitant]
     Active Substance: ALUMINUM HYDROXIDE\MAGNESIUM CARBONATE
  3. LANTUS [Concomitant]
     Active Substance: INSULIN GLARGINE
  4. LOPRESSOR [Concomitant]
     Active Substance: METOPROLOL TARTRATE
     Indication: ARRHYTHMIA
  5. SODIUM CHLORIDE. [Concomitant]
     Active Substance: SODIUM CHLORIDE
  6. VITAMIN D3 [Concomitant]
     Active Substance: CHOLECALCIFEROL
  7. CARDIZEM [Concomitant]
     Active Substance: DILTIAZEM HYDROCHLORIDE
  8. XOPENEX [Concomitant]
     Active Substance: LEVALBUTEROL HYDROCHLORIDE
     Indication: DYSPNOEA
  9. OXYGEN. [Concomitant]
     Active Substance: OXYGEN
     Dosage: 5 L
  10. HUMALOG [Concomitant]
     Active Substance: INSULIN LISPRO
  11. BREO ELLIPTA [Concomitant]
     Active Substance: FLUTICASONE FUROATE\VILANTEROL TRIFENATATE
  12. OCEAN MIST [Concomitant]
     Indication: NASAL DRYNESS
  13. NYSTATIN. [Concomitant]
     Active Substance: NYSTATIN
  14. SOLU-MEDROL [Concomitant]
     Active Substance: METHYLPREDNISOLONE SODIUM SUCCINATE
  15. ELIQUIS [Concomitant]
     Active Substance: APIXABAN
  16. KLOR-CON [Concomitant]
     Active Substance: POTASSIUM CHLORIDE
  17. AZTREONAM LYSINE [Suspect]
     Active Substance: AZTREONAM LYSINE
     Indication: PSEUDOMONAS INFECTION
     Dosage: 75 MG, UNK
     Route: 055
     Dates: start: 20170620, end: 20180123
  18. LASIX [Concomitant]
     Active Substance: FUROSEMIDE
  19. MUCINEX [Concomitant]
     Active Substance: GUAIFENESIN
  20. OXYGEN. [Concomitant]
     Active Substance: OXYGEN
     Dosage: 2 L
  21. LACTOBACILLUS BULGARICUS W/STREPTOCOCCUS THER [Concomitant]
  22. INCRUSE ELLIPTA [Concomitant]
     Active Substance: UMECLIDINIUM BROMIDE

REACTIONS (8)
  - Pseudomonal sepsis [Unknown]
  - Clostridium difficile infection [Unknown]
  - Off label use [Recovered/Resolved]
  - Infective exacerbation of bronchiectasis [Unknown]
  - Pseudomonal sepsis [Not Recovered/Not Resolved]
  - Pulmonary sepsis [Unknown]
  - Clostridium difficile infection [Unknown]
  - Infective exacerbation of bronchiectasis [Fatal]

NARRATIVE: CASE EVENT DATE: 20170620
